FAERS Safety Report 9381705 (Version 2)
Quarter: 2013Q3

REPORT INFORMATION
  Report Type: Report from Study
  Country: CA (occurrence: CA)
  Receive Date: 20130703
  Receipt Date: 20130716
  Transmission Date: 20140515
  Serious: Yes (Death)
  Sender: FDA-Public Use
  Company Number: CA-ASTELLAS-2013US006720

PATIENT
  Age: 64 Year
  Sex: Male
  Weight: 72 kg

DRUGS (26)
  1. ENZALUTAMIDE [Suspect]
     Indication: PROSTATE CANCER
     Dosage: 160 MG, UID/QD
     Route: 048
  2. FENTANYL [Concomitant]
     Indication: BONE PAIN
     Dosage: 150 DF, UNKNOWN/D
     Route: 061
     Dates: start: 20120508
  3. FRAGMIN [Concomitant]
     Indication: PROPHYLAXIS
     Dosage: 12500 MG, QID
     Route: 058
     Dates: start: 20120525
  4. GABAPENTIN [Concomitant]
     Indication: PRODUCT USED FOR UNKNOWN INDICATION
     Dosage: 600 MG, TID
     Route: 048
     Dates: start: 20120508
  5. METHADONE [Concomitant]
     Indication: BONE PAIN
     Dosage: 5 MG, 8 TIMES A DAY
     Route: 048
  6. DOMPERIDONE [Concomitant]
     Indication: NAUSEA
     Dosage: 10 MG, TID
     Route: 048
     Dates: start: 20121024
  7. PREDNISONE [Concomitant]
     Indication: PRODUCT USED FOR UNKNOWN INDICATION
     Dosage: 5 MG, BID
     Route: 048
     Dates: start: 20120508
  8. NEXIUM                             /01479302/ [Concomitant]
     Indication: GASTROOESOPHAGEAL REFLUX DISEASE
     Dosage: 40 MG, UID/QD
     Route: 048
     Dates: start: 20121210
  9. DIGOXIN [Concomitant]
     Indication: PRODUCT USED FOR UNKNOWN INDICATION
     Dosage: 5 MG, BID
     Route: 048
     Dates: start: 20120508
  10. HALOPERIDOL [Concomitant]
     Indication: PRODUCT USED FOR UNKNOWN INDICATION
     Dosage: 1 MG, TID
     Route: 048
     Dates: start: 20120626
  11. SENNOSIDES A+B [Concomitant]
     Indication: CONSTIPATION
     Dosage: 8.6 MG, UID/QD
     Route: 048
     Dates: start: 20121105
  12. VITAMIN D                          /00107901/ [Concomitant]
     Indication: GENERAL SYMPTOM
     Dosage: 1000 IU
     Route: 048
  13. CALCIUM                            /00241701/ [Concomitant]
     Indication: GENERAL SYMPTOM
     Dosage: 1500 MG, UID/QD
     Route: 048
  14. ZOLADEX                            /00732101/ [Concomitant]
     Indication: PROSTATE CANCER METASTATIC
     Dosage: 10.8 MG, Q12WEEK
     Route: 058
     Dates: start: 2010
  15. DEXAMETHASONE [Concomitant]
     Indication: PRODUCT USED FOR UNKNOWN INDICATION
     Dosage: 2 MG, UID/QD
     Route: 048
     Dates: start: 20120508
  16. DILAUDID [Concomitant]
     Indication: PRODUCT USED FOR UNKNOWN INDICATION
     Dosage: 8 MG, 6/DAY
     Route: 048
     Dates: start: 20120525
  17. ERYTHROMYCIN [Concomitant]
     Indication: PRODUCT USED FOR UNKNOWN INDICATION
     Dosage: 5 MG, 0.5/DAY
     Route: 048
     Dates: start: 20120919
  18. HYDROMORPHONE HP [Concomitant]
     Indication: PRODUCT USED FOR UNKNOWN INDICATION
     Dosage: 10 MG/ML, 8/DAY
     Route: 058
     Dates: start: 20120508
  19. LORAZEPAM [Concomitant]
     Indication: PRODUCT USED FOR UNKNOWN INDICATION
     Dosage: 1 MG, UID/QD
     Route: 048
     Dates: start: 20120716
  20. METADOL [Concomitant]
     Indication: BONE PAIN
     Dosage: 5 MG, 9/DAY
     Route: 048
     Dates: start: 20120508
  21. METOCLOP [Concomitant]
     Indication: PRODUCT USED FOR UNKNOWN INDICATION
     Dosage: 10 MG, 4/DAY
     Route: 048
     Dates: start: 20120707
  22. NYSTATIN [Concomitant]
     Indication: PRODUCT USED FOR UNKNOWN INDICATION
     Dosage: 21.429 DF, OTHER
     Route: 065
     Dates: start: 20120730
  23. PANTOPRAZOLE [Concomitant]
     Indication: PRODUCT USED FOR UNKNOWN INDICATION
     Dosage: 40 MG, BID 2/DAY
     Route: 048
     Dates: start: 20120508
  24. SUFENTANIL [Concomitant]
     Indication: PRODUCT USED FOR UNKNOWN INDICATION
     Dosage: 50 UG/ML, UID/QD
     Route: 048
     Dates: start: 20121231
  25. ZOPICLONE [Concomitant]
     Indication: PRODUCT USED FOR UNKNOWN INDICATION
     Dosage: 7.5 MG, UID/QD
     Route: 048
     Dates: start: 20120508
  26. ZYTIGA [Concomitant]
     Indication: PRODUCT USED FOR UNKNOWN INDICATION
     Dosage: 250 MG, TID
     Route: 048
     Dates: start: 20120524

REACTIONS (1)
  - Multi-organ failure [Fatal]
